FAERS Safety Report 18291828 (Version 1)
Quarter: 2020Q3

REPORT INFORMATION
  Report Type: Spontaneous
  Country: GR (occurrence: GR)
  Receive Date: 20200921
  Receipt Date: 20200921
  Transmission Date: 20201103
  Serious: Yes (Hospitalization)
  Sender: FDA-Public Use
  Company Number: GR-ELI_LILLY_AND_COMPANY-GR202009007016

PATIENT
  Age: 63 Year
  Sex: Male

DRUGS (9)
  1. XARELTO [Concomitant]
     Active Substance: RIVAROXABAN
     Indication: CARDIAC DISORDER
     Dosage: 1 DOSAGE FORM, DAILY
  2. GLUCOPHAGE [Concomitant]
     Active Substance: METFORMIN HYDROCHLORIDE
     Indication: DIABETES MELLITUS
     Dosage: 1 DOSAGE FORM, DAILY
  3. OMNIC [Concomitant]
     Active Substance: TAMSULOSIN HYDROCHLORIDE
     Indication: BENIGN PROSTATIC HYPERPLASIA
     Dosage: 1 DOSAGE FORM, DAILY
  4. TRULICITY [Suspect]
     Active Substance: DULAGLUTIDE
     Indication: DIABETES MELLITUS
     Dosage: 1.5 MG, WEEKLY (1/W)
     Route: 058
     Dates: start: 201903, end: 20200820
  5. LIPOCOMB [Concomitant]
     Active Substance: EZETIMIBE\ROSUVASTATIN ZINC
     Indication: BLOOD TRIGLYCERIDES ABNORMAL
  6. LEVEMIR [Concomitant]
     Active Substance: INSULIN DETEMIR
     Indication: DIABETES MELLITUS
     Dosage: 42 INTERNATIONAL UNIT, DAILY
  7. LIPOCOMB [Concomitant]
     Active Substance: EZETIMIBE\ROSUVASTATIN ZINC
     Indication: BLOOD CHOLESTEROL ABNORMAL
     Dosage: 1 DOSAGE FORM, DAILY
  8. INOSAMIN [Concomitant]
     Indication: HYPERTENSION
     Dosage: 1 DOSAGE FORM, DAILY
  9. CONCOR [Concomitant]
     Active Substance: BISOPROLOL FUMARATE
     Indication: CARDIAC DISORDER
     Dosage: 1 DOSAGE FORM, DAILY

REACTIONS (1)
  - Diverticulitis [Recovered/Resolved]

NARRATIVE: CASE EVENT DATE: 20200820
